FAERS Safety Report 5186509-4 (Version None)
Quarter: 2006Q4

REPORT INFORMATION
  Report Type: 
  Country: None (occurrence: None)
  Receive Date: 20061213
  Receipt Date: 20061127
  Transmission Date: 20070319
  Serious: Yes (Hospitalization)
  Sender: FDA-Public Use
  Company Number: ACO_0292_2006

PATIENT
  Age: 90 Year
  Sex: Male

DRUGS (14)
  1. SIRDALUD [Suspect]
     Indication: MUSCLE SPASTICITY
     Dosage: 6 MG QDAY
     Dates: start: 20040420, end: 20040422
  2. SIRDALUD [Suspect]
     Indication: PAIN
     Dosage: 6 MG QDAY
     Dates: start: 20040420, end: 20040422
  3. SIRDALUD [Suspect]
     Indication: MUSCLE SPASTICITY
     Dosage: 12 MG QDAY PO
     Route: 048
     Dates: start: 20040423, end: 20040426
  4. SIRDALUD [Suspect]
     Indication: PAIN
     Dosage: 12 MG QDAY PO
     Route: 048
     Dates: start: 20040423, end: 20040426
  5. SIRDALUD [Suspect]
     Indication: MUSCLE SPASTICITY
     Dosage: 6 MG QDAY PO
     Route: 048
     Dates: start: 20040427, end: 20040529
  6. SIRDALUD [Suspect]
     Indication: PAIN
     Dosage: 6 MG QDAY PO
     Route: 048
     Dates: start: 20040427, end: 20040529
  7. SIRDALUD [Suspect]
     Indication: MUSCLE SPASTICITY
     Dosage: 2 MG QDAY PO
     Route: 048
     Dates: start: 20040615, end: 20040626
  8. SIRDALUD [Suspect]
     Indication: PAIN
     Dosage: 2 MG QDAY PO
     Route: 048
     Dates: start: 20040615, end: 20040626
  9. SIRDALUD [Suspect]
     Indication: MUSCLE SPASTICITY
     Dosage: 4 MG QDAY PO
     Route: 048
     Dates: start: 20040627, end: 20040717
  10. SIRDALUD [Suspect]
     Indication: PAIN
     Dosage: 4 MG QDAY PO
     Route: 048
     Dates: start: 20040627, end: 20040717
  11. LORAZEPAM [Concomitant]
  12. TRAMADOL HCL [Concomitant]
  13. NORVASC [Concomitant]
  14. ATACAND [Concomitant]

REACTIONS (10)
  - BRADYCARDIA [None]
  - CHEYNE-STOKES RESPIRATION [None]
  - DEHYDRATION [None]
  - LOSS OF CONSCIOUSNESS [None]
  - OVERDOSE [None]
  - OXYGEN SATURATION DECREASED [None]
  - PULMONARY CONGESTION [None]
  - REGURGITATION OF FOOD [None]
  - SOMNOLENCE [None]
  - VOMITING [None]
